FAERS Safety Report 25662352 (Version 2)
Quarter: 2025Q3

REPORT INFORMATION
  Report Type: Spontaneous
  Country: US (occurrence: US)
  Receive Date: 20250810
  Receipt Date: 20250811
  Transmission Date: 20251021
  Serious: No
  Sender: NOVARTIS
  Company Number: US-002147023-NVSC2025US121551

PATIENT
  Age: 68 Year
  Sex: Male

DRUGS (2)
  1. MEKINIST [Suspect]
     Active Substance: TRAMETINIB DIMETHYL SULFOXIDE
     Indication: Pituitary tumour
     Dosage: 2 MG, QD
     Route: 048
  2. TAFINLAR [Concomitant]
     Active Substance: DABRAFENIB MESYLATE
     Indication: Pituitary tumour
     Dosage: UNK, QD
     Route: 065

REACTIONS (1)
  - Product temperature excursion issue [Unknown]
